FAERS Safety Report 23378013 (Version 1)
Quarter: 2024Q1

REPORT INFORMATION
  Report Type: Spontaneous
  Country: US (occurrence: None)
  Receive Date: 20240105
  Receipt Date: 20240105
  Transmission Date: 20240410
  Serious: Yes (Disabling, Other)
  Sender: FDA-Public Use
  Company Number: None

PATIENT
  Age: 72 Year
  Sex: Female
  Weight: 83.25 kg

DRUGS (6)
  1. OZEMPIC [Suspect]
     Active Substance: SEMAGLUTIDE
     Indication: Glycosylated haemoglobin increased
     Dosage: OTHER QUANTITY : 1 INJECTION(S);?FREQUENCY : WEEKLY;?
     Route: 058
  2. ROSUVASTATIN [Concomitant]
     Active Substance: ROSUVASTATIN
  3. EZETIMIBE [Concomitant]
     Active Substance: EZETIMIBE
  4. LEVOTHYROXINE [Concomitant]
     Active Substance: LEVOTHYROXINE
  5. ESTRACE [Concomitant]
     Active Substance: ESTRADIOL
  6. VITAMIN D3 [Concomitant]
     Active Substance: CHOLECALCIFEROL

REACTIONS (8)
  - Intestinal obstruction [None]
  - Diarrhoea [None]
  - Vomiting [None]
  - Gastrointestinal sounds abnormal [None]
  - Gastrointestinal haemorrhage [None]
  - Therapy cessation [None]
  - Near death experience [None]
  - Weight increased [None]

NARRATIVE: CASE EVENT DATE: 20230401
